FAERS Safety Report 10025843 (Version 1)
Quarter: 2014Q1

REPORT INFORMATION
  Report Type: Spontaneous
  Country: GB (occurrence: None)
  Receive Date: 20140314
  Receipt Date: 20140314
  Transmission Date: 20141002
  Serious: Yes (Hospitalization, Other)
  Sender: FDA-Public Use
  Company Number: AUR-APL-2014-02608

PATIENT
  Age: 30 Year
  Sex: Female
  Weight: 88.9 kg

DRUGS (7)
  1. FLUOXETINE (FLUOXETINE) [Suspect]
     Indication: PRODUCT USED FOR UNKNOWN INDICATION
  2. TRAMADOL (TRAMADOL) [Suspect]
     Indication: ABDOMINAL PAIN
     Route: 048
     Dates: start: 20050702, end: 20060702
  3. BUSCOPAN (HYOSCINE BUTTYLBROMIDE) [Concomitant]
  4. MERBENTYL (DICLYCLOVERINE HDYROCHLORIDE) [Concomitant]
  5. PARACETAMOL (PARACETAMOL) [Concomitant]
  6. SALBUTAMOL (SALBUAMOL) [Concomitant]
  7. SERETIDE (SERETIDE) [Concomitant]

REACTIONS (3)
  - Transient ischaemic attack [None]
  - Hypertension [None]
  - Drug interaction [None]
